FAERS Safety Report 10395276 (Version 2)
Quarter: 2014Q3

REPORT INFORMATION
  Report Type: Report from Study
  Country: BR (occurrence: BR)
  Receive Date: 20140820
  Receipt Date: 20140901
  Transmission Date: 20150326
  Serious: Yes (Other)
  Sender: FDA-Public Use
  Company Number: PHHY2014BR102521

PATIENT
  Sex: Female

DRUGS (4)
  1. METICORTEN [Concomitant]
     Active Substance: PREDNISONE
     Indication: HYPOTHALAMO-PITUITARY DISORDER
     Dosage: 1 DF, DAILY
     Route: 048
     Dates: start: 1995
  2. PURAN [Concomitant]
     Active Substance: LEVOTHYROXINE SODIUM
     Indication: HYPOTHYROIDISM
     Dosage: 1 DF, DAILY
     Route: 048
  3. SANDOSTATIN LAR DEPOT [Suspect]
     Active Substance: OCTREOTIDE ACETATE
     Dosage: 20 MG, QMO
     Route: 030
  4. SANDOSTATIN LAR DEPOT [Suspect]
     Active Substance: OCTREOTIDE ACETATE
     Indication: PITUITARY TUMOUR
     Dosage: 30 MG, QMO
     Route: 030

REACTIONS (5)
  - Limb asymmetry [Not Recovered/Not Resolved]
  - Body height decreased [Not Recovered/Not Resolved]
  - Body height increased [Unknown]
  - Gallbladder disorder [Recovered/Resolved]
  - Post procedural complication [Recovered/Resolved]
